FAERS Safety Report 11220214 (Version 1)
Quarter: 2015Q2

REPORT INFORMATION
  Report Type: Report from Study
  Country: US (occurrence: US)
  Receive Date: 20150625
  Receipt Date: 20150625
  Transmission Date: 20150821
  Serious: No
  Sender: FDA-Public Use
  Company Number: US-EXELIXIS-CABO-15005298

PATIENT
  Sex: Female

DRUGS (5)
  1. CABOZANTINIB [Suspect]
     Active Substance: CABOZANTINIB
     Dosage: 60 MG QD
     Route: 048
     Dates: start: 20150404
  2. CABOZANTINIB [Suspect]
     Active Substance: CABOZANTINIB
     Dosage: 60 MG, X4 DAYS
     Route: 048
     Dates: start: 20150401
  3. LOSARTAN [Concomitant]
     Active Substance: LOSARTAN
  4. CABOZANTINIB [Suspect]
     Active Substance: CABOZANTINIB
     Indication: THYROID CANCER
     Dosage: 140 MG, QD
     Route: 048
     Dates: start: 20150317, end: 20150319
  5. CABOZANTINIB [Suspect]
     Active Substance: CABOZANTINIB
     Dosage: 40 MG, X3 DAYS
     Route: 048
     Dates: start: 20150401

REACTIONS (10)
  - Increased tendency to bruise [Unknown]
  - Headache [Unknown]
  - Stomatitis [Unknown]
  - Blood pressure increased [Recovering/Resolving]
  - Ageusia [Unknown]
  - Weight decreased [Not Recovered/Not Resolved]
  - Rash [Unknown]
  - Eating disorder [Unknown]
  - Skin discolouration [Unknown]
  - Drug intolerance [Unknown]
